FAERS Safety Report 10186585 (Version 1)
Quarter: 2014Q2

REPORT INFORMATION
  Report Type: Spontaneous
  Country: US (occurrence: US)
  Receive Date: 20140521
  Receipt Date: 20140521
  Transmission Date: 20141212
  Serious: Yes (Hospitalization)
  Sender: FDA-Public Use
  Company Number: US-GILEAD-2014-0102744

PATIENT
  Age: 73 Year
  Sex: Female

DRUGS (6)
  1. LETAIRIS [Suspect]
     Indication: PRODUCT USED FOR UNKNOWN INDICATION
     Dosage: 5 MG, UNK
     Route: 065
     Dates: start: 20120328
  2. ASA [Concomitant]
     Dosage: 81 MG, UNK
  3. TYVASO [Concomitant]
     Dosage: UNK
  4. LASIX                              /00032601/ [Concomitant]
  5. REVATIO [Concomitant]
     Dosage: 20 MG, UNK
  6. WARFARIN [Concomitant]
     Dosage: 2.5 MG, UNK

REACTIONS (1)
  - Palpitations [Recovering/Resolving]
